FAERS Safety Report 23817827 (Version 1)
Quarter: 2024Q2

REPORT INFORMATION
  Report Type: Spontaneous
  Country: DE (occurrence: DE)
  Receive Date: 20240506
  Receipt Date: 20240506
  Transmission Date: 20240716
  Serious: Yes (Hospitalization, Other)
  Sender: FDA-Public Use
  Company Number: DE-NOVOPROD-1212617

PATIENT
  Age: 26 Year
  Sex: Female

DRUGS (3)
  1. TRESIBA [Suspect]
     Active Substance: INSULIN DEGLUDEC
     Indication: Type 1 diabetes mellitus
     Dosage: UNK
  2. APIDRA [Suspect]
     Active Substance: INSULIN GLULISINE
     Indication: Type 1 diabetes mellitus
     Dosage: 13 IU
     Route: 058
  3. UNSPECIFIED INGREDIENT [Concomitant]
     Active Substance: UNSPECIFIED INGREDIENT
     Indication: Contraception
     Dosage: UNK

REACTIONS (8)
  - Diabetic ketoacidosis [Unknown]
  - Hypovolaemia [Unknown]
  - Blood glucose increased [Unknown]
  - Bronchitis [Unknown]
  - Nausea [Unknown]
  - Drug intolerance [Unknown]
  - Food aversion [Unknown]
  - Maternal exposure during pregnancy [Unknown]
